FAERS Safety Report 9685295 (Version 1)
Quarter: 2013Q4

REPORT INFORMATION
  Report Type: Spontaneous
  Country: DE (occurrence: DE)
  Receive Date: 20131113
  Receipt Date: 20131113
  Transmission Date: 20140711
  Serious: Yes (Hospitalization)
  Sender: FDA-Public Use
  Company Number: DE-JNJFOC-20131106920

PATIENT
  Age: 85 Year
  Sex: Female

DRUGS (1)
  1. PALEXIA RETARD [Suspect]
     Indication: PAIN
     Route: 048
     Dates: start: 20130919, end: 20130920

REACTIONS (1)
  - Muscle spasms [Recovered/Resolved]
